FAERS Safety Report 5643158-9 (Version None)
Quarter: 2008Q1

REPORT INFORMATION
  Report Type: 
  Country: None (occurrence: None)
  Receive Date: 20080228
  Receipt Date: 20080221
  Transmission Date: 20080703
  Serious: Yes (Hospitalization)
  Sender: FDA-Public Use
  Company Number: FR-AVENTIS-200810746FR

PATIENT
  Age: 84 Year
  Sex: Female

DRUGS (3)
  1. RIFINAH [Suspect]
     Route: 048
     Dates: start: 20071207, end: 20071231
  2. CORTANCYL [Concomitant]
     Route: 048
  3. METHOTREXATE [Concomitant]

REACTIONS (4)
  - DYSPNOEA [None]
  - NAUSEA [None]
  - PNEUMONIA ASPIRATION [None]
  - VOMITING [None]
